FAERS Safety Report 9767944 (Version 1)
Quarter: 2013Q4

REPORT INFORMATION
  Report Type: Report from Study
  Country: JP (occurrence: JP)
  Receive Date: 20131217
  Receipt Date: 20131217
  Transmission Date: 20140711
  Serious: Yes (Other)
  Sender: FDA-Public Use
  Company Number: JP-GLAXOSMITHKLINE-B0935482A

PATIENT
  Age: 70 Year
  Sex: Male

DRUGS (5)
  1. ARZERRA [Suspect]
     Indication: CHRONIC LYMPHOCYTIC LEUKAEMIA
     Dosage: 300MG PER DAY
     Route: 042
     Dates: start: 20131008, end: 20131008
  2. ARZERRA [Suspect]
     Indication: CHRONIC LYMPHOCYTIC LEUKAEMIA
     Route: 042
     Dates: start: 20131120, end: 20131120
  3. PREDNISOLONE [Concomitant]
     Route: 048
     Dates: start: 20131008, end: 20131008
  4. ACETAMINOPHEN [Concomitant]
     Route: 048
     Dates: start: 20131008, end: 20131008
  5. XYZAL [Concomitant]
     Route: 048
     Dates: start: 20131008, end: 20131008

REACTIONS (2)
  - Liver disorder [Recovering/Resolving]
  - Herpes zoster [Not Recovered/Not Resolved]
